FAERS Safety Report 4728871-X (Version None)
Quarter: 2005Q3

REPORT INFORMATION
  Report Type: 
  Country: None (occurrence: None)
  Receive Date: 20050729
  Receipt Date: 20041007
  Transmission Date: 20060218
  Serious: No
  Sender: FDA-Public Use
  Company Number: US-GLAXOSMITHKLINE-A0529026A

PATIENT
  Age: 27 Year
  Sex: Female
  Weight: 68.2 kg

DRUGS (1)
  1. IMITREX [Suspect]
     Indication: MIGRAINE
     Route: 048
     Dates: start: 20041001, end: 20041001

REACTIONS (6)
  - CHEST DISCOMFORT [None]
  - CONFUSIONAL STATE [None]
  - DISORIENTATION [None]
  - DIZZINESS [None]
  - MALAISE [None]
  - NAUSEA [None]
